FAERS Safety Report 4864147-8 (Version None)
Quarter: 2005Q4

REPORT INFORMATION
  Report Type: 
  Country: None (occurrence: None)
  Receive Date: 20051222
  Receipt Date: 20051219
  Transmission Date: 20060501
  Serious: Yes (Hospitalization)
  Sender: FDA-Public Use
  Company Number: NL-GLAXOSMITHKLINE-B0404257A

PATIENT
  Age: 76 Year

DRUGS (3)
  1. ROSIGLITAZONE MALEATE [Suspect]
     Dosage: 4MG PER DAY
     Dates: start: 20030101
  2. METFORMINE [Concomitant]
     Dosage: 500MG PER DAY
  3. GLICLAZIDE [Concomitant]
     Dosage: 80MG PER DAY

REACTIONS (1)
  - HEPATITIS CHOLESTATIC [None]
